FAERS Safety Report 7574706-X (Version None)
Quarter: 2011Q2

REPORT INFORMATION
  Report Type: 
  Country: None (occurrence: None)
  Receive Date: 20110627
  Receipt Date: 20110614
  Transmission Date: 20111010
  Serious: Yes (Death)
  Sender: FDA-Public Use
  Company Number: US-BAYER-2011-001146

PATIENT
  Age: 26 Year
  Sex: Female
  Weight: 68.027 kg

DRUGS (1)
  1. YASMIN [Suspect]
     Indication: ACNE
     Dosage: UNK
     Dates: start: 20030101, end: 20030416

REACTIONS (3)
  - INJURY [None]
  - PAIN [None]
  - PULMONARY EMBOLISM [None]
